FAERS Safety Report 6072504-X (Version None)
Quarter: 2009Q1

REPORT INFORMATION
  Report Type: 
  Country: None (occurrence: None)
  Receive Date: 20090210
  Receipt Date: 20081229
  Transmission Date: 20090719
  Serious: Yes (Hospitalization, Other)
  Sender: FDA-Public Use
  Company Number: JP-PFIZER INC-2008085258

PATIENT

DRUGS (6)
  1. SUNITINIB MALATE [Suspect]
     Indication: RENAL CELL CARCINOMA
     Dosage: 50 MG, 1X/DAY
     Route: 048
     Dates: start: 20080918, end: 20081124
  2. OLMETEC [Concomitant]
     Route: 048
     Dates: start: 20080919
  3. MAG-LAX [Concomitant]
     Indication: CONSTIPATION
     Route: 048
  4. LAC B [Concomitant]
     Route: 048
  5. EVIPROSTAT [Concomitant]
     Indication: BENIGN PROSTATIC HYPERPLASIA
     Route: 048
  6. AMLODIN [Concomitant]
     Indication: HYPERTENSION
     Dosage: UNK
     Route: 048

REACTIONS (7)
  - HAEMOGLOBIN DECREASED [None]
  - HAEMOTHORAX [None]
  - HYPERTENSION [None]
  - LIPASE INCREASED [None]
  - LYMPHOCYTE COUNT DECREASED [None]
  - PLATELET COUNT DECREASED [None]
  - WHITE BLOOD CELL COUNT DECREASED [None]
